FAERS Safety Report 6540126-X (Version None)
Quarter: 2010Q1

REPORT INFORMATION
  Report Type: 
  Country: None (occurrence: None)
  Receive Date: 20100115
  Receipt Date: 20100105
  Transmission Date: 20100710
  Serious: Yes (Hospitalization)
  Sender: FDA-Public Use
  Company Number: US-WATSON-2009-10935

PATIENT
  Sex: Female
  Weight: 65.306 kg

DRUGS (14)
  1. MYSOLINE [Suspect]
     Indication: GRAND MAL CONVULSION
     Dosage: 1 YELLOW TABLET, TID
     Route: 048
     Dates: start: 20091129
  2. MYSOLINE [Suspect]
     Dosage: 1 YELLOW TABLET, TID, THEN 0.5 TABLET QHS
     Route: 048
     Dates: start: 20091124, end: 20091128
  3. MYSOLINE [Suspect]
     Dosage: 1 YELLOW TABLET, QID
     Route: 048
     Dates: start: 20091113, end: 20091123
  4. MYSOLINE [Suspect]
     Dosage: 1 YELLOW TABLET, TID, AND 1 WHITE TABLET DAILY
     Route: 048
     Dates: start: 20091022, end: 20091112
  5. MYSOLINE [Suspect]
     Dosage: 1 YELLOW TAB, BID, 1 WHITE TAB BID, ALTERNATING BETWEEN THE TWO
     Route: 048
     Dates: start: 20091007, end: 20091021
  6. MYSOLINE [Suspect]
     Dosage: 1 YELLOW TAB, DAILY, AND 1 WHITE TAB, TID
     Route: 048
     Dates: start: 20090923, end: 20091006
  7. MYSOLINE [Suspect]
     Dosage: 1 WHITE TABLET, QID
     Route: 048
     Dates: start: 20090401, end: 20090922
  8. MYSOLINE [Suspect]
     Indication: GRAND MAL CONVULSION
     Dosage: 1 YELLOW TABLET, TID
     Route: 048
     Dates: start: 20091129
  9. MYSOLINE [Suspect]
     Dosage: 1 YELLOW TABLET, TID, 1/2 YELLOW TAB QHS
     Route: 048
     Dates: start: 20091124, end: 20091128
  10. MYSOLINE [Suspect]
     Dosage: 1 YELLOW TABLET, QID
     Route: 048
     Dates: start: 20091113, end: 20091123
  11. MYSOLINE [Suspect]
     Dosage: 1 YELLOW TABLET, TID, AND 1 WHITE TABLET DAILY
     Route: 048
     Dates: start: 20091022, end: 20091112
  12. MYSOLINE [Suspect]
     Dosage: 1 YELLOW TABLET, BID, AND 1 WHITE TAB BID, ALTERNATING BETWEEN THE TWO
     Route: 048
     Dates: start: 20091007, end: 20091021
  13. MYSOLINE [Suspect]
     Dosage: 1 YELLOW TABLET DAILY, 1 WHITE TABLET TID
     Route: 048
     Dates: start: 20090923, end: 20091006
  14. MYSOLINE [Suspect]
     Dosage: 1 YELLOW TABLET, QID
     Route: 048
     Dates: start: 19790101, end: 20090401

REACTIONS (12)
  - ABDOMINAL PAIN [None]
  - ANTICONVULSANT DRUG LEVEL ABOVE THERAPEUTIC [None]
  - BILE DUCT STONE [None]
  - CHOLELITHIASIS [None]
  - DECREASED APPETITE [None]
  - ENZYME ABNORMALITY [None]
  - HIATUS HERNIA [None]
  - LETHARGY [None]
  - NAUSEA [None]
  - PANCREATITIS ACUTE [None]
  - REFLUX GASTRITIS [None]
  - WEIGHT DECREASED [None]
